FAERS Safety Report 8025054 (Version 3)
Quarter: 2014Q1

REPORT INFORMATION
  Report Type: Report from Study
  Country: DE (occurrence: DE)
  Receive Date: 20110707
  Receipt Date: 20140120
  Transmission Date: 20141002
  Serious: Yes (Death)
  Sender: FDA-Public Use
  Company Number: DE-ROCHE-779492

PATIENT
  Age: 57 Year
  Sex: Female
  Weight: 60 kg

DRUGS (10)
  1. OXALIPLATIN [Suspect]
     Indication: COLORECTAL CANCER METASTATIC
     Dosage: FORM: INFUSION, DATE OF LAST DOSE PRIOR TO SAE: 25 AUGUST
     Route: 042
     Dates: start: 20100825, end: 20100908
  2. IRINOTECAN [Suspect]
     Indication: COLORECTAL CANCER METASTATIC
     Dosage: FORM: INFUSION, DATE OF LAST DOSE PRIOR TO SAE: 25 AUGUST 2010.
     Route: 042
     Dates: start: 20100825, end: 20100908
  3. FLUOROURACIL [Suspect]
     Indication: COLORECTAL CANCER METASTATIC
     Route: 042
     Dates: start: 20100825, end: 20100908
  4. FLUOROURACIL [Suspect]
     Dosage: UNITS TAKEN FROM PROTOCOL.  LAST DOSE PRIOR TO SAE : 20 MAY 2011
     Route: 042
     Dates: start: 20110518
  5. FOLINIC ACID [Suspect]
     Indication: COLORECTAL CANCER METASTATIC
     Dosage: FORM: INFUSION. DATE OF LAST DOSE PRIOR TA SAE: 25 AUGUST 2010
     Route: 042
     Dates: start: 20100825, end: 20100908
  6. BEVACIZUMAB [Suspect]
     Indication: COLORECTAL CANCER METASTATIC
     Dosage: FORM: INFUSION. DATE OF LAST DOSE PRIOR TO SAE: 25 AUGUST 2010
     Route: 042
     Dates: start: 20100825, end: 20100908
  7. BEVACIZUMAB [Suspect]
     Dosage: UNITS : TAKEN FROM PROTOCOL. LAST DOSE PRIOR TO SAE : 18 MAY 2011
     Route: 042
     Dates: start: 20110518
  8. GRANISETRON [Concomitant]
     Dosage: FREQUENCY: IF NECESSARY
     Route: 065
  9. LOPERAMIDE [Concomitant]
     Dosage: FREQUENCY: IF NECESSARY
     Route: 065
  10. AMPHO MORONAL [Concomitant]
     Dosage: FREQUENCY: IF NECESSARY
     Route: 065

REACTIONS (1)
  - Infected neoplasm [Fatal]
